FAERS Safety Report 7981444-8 (Version None)
Quarter: 2011Q4

REPORT INFORMATION
  Report Type: 
  Country: None (occurrence: None)
  Receive Date: 20111213
  Receipt Date: 20111205
  Transmission Date: 20120403
  Serious: Yes (Other)
  Sender: FDA-Public Use
  Company Number: 2011MA017427

PATIENT
  Sex: Female

DRUGS (2)
  1. FINASTERIDE [Suspect]
     Indication: MATERNAL EXPOSURE DURING PREGNANCY
     Dosage: X1
  2. FINASTERIDE [Suspect]
     Indication: ACCIDENTAL EXPOSURE
     Dosage: X1

REACTIONS (4)
  - INCORRECT ROUTE OF DRUG ADMINISTRATION [None]
  - ACCIDENTAL EXPOSURE [None]
  - MATERNAL EXPOSURE DURING PREGNANCY [None]
  - WRONG TECHNIQUE IN DRUG USAGE PROCESS [None]
